FAERS Safety Report 22237138 (Version 2)
Quarter: 2023Q2

REPORT INFORMATION
  Report Type: Spontaneous
  Country: US (occurrence: None)
  Receive Date: 20230421
  Receipt Date: 20230421
  Transmission Date: 20230722
  Serious: No
  Sender: FDA-Public Use
  Company Number: US-ROCHE-3294389

PATIENT
  Sex: Male

DRUGS (13)
  1. ESBRIET [Suspect]
     Active Substance: PIRFENIDONE
     Indication: Interstitial lung disease
     Dosage: WEEK 1: 267 MG ,1 CAPSULE BY MOUTH 3 TIMES A DAY , WEEK 2: 534 MG, 2 CAPSULES BY MOUTH 3 TIMES A DAY
     Route: 048
     Dates: start: 20230202
  2. ALBUTEROL SULFATE [Concomitant]
     Active Substance: ALBUTEROL SULFATE
  3. AMLODIPINE [Concomitant]
     Active Substance: AMLODIPINE BESYLATE
  4. ASPIRIN [Concomitant]
     Active Substance: ASPIRIN
  5. ATORVASTATIN [Concomitant]
     Active Substance: ATORVASTATIN
  6. EVOXAC [Concomitant]
     Active Substance: CEVIMELINE HYDROCHLORIDE
  7. FINASTERIDE [Concomitant]
     Active Substance: FINASTERIDE
  8. HYOSCYAMINE [Concomitant]
     Active Substance: HYOSCYAMINE
  9. METOPROLOL [Concomitant]
     Active Substance: METOPROLOL
  10. ONDANSETRON [Concomitant]
     Active Substance: ONDANSETRON
  11. PREDNISONE [Concomitant]
     Active Substance: PREDNISONE
  12. TAMSULOSIN [Concomitant]
     Active Substance: TAMSULOSIN
  13. ERGOCALCIFEROL [Concomitant]
     Active Substance: ERGOCALCIFEROL

REACTIONS (2)
  - Dyspnoea [Unknown]
  - Oxygen therapy [Unknown]
